FAERS Safety Report 10333606 (Version 1)
Quarter: 2014Q3

REPORT INFORMATION
  Report Type: Report from Study
  Country: GB (occurrence: GB)
  Receive Date: 20140723
  Receipt Date: 20140723
  Transmission Date: 20150326
  Serious: Yes (Death)
  Sender: FDA-Public Use
  Company Number: GB-ROCHE-1438840

PATIENT
  Age: 58 Year
  Sex: Male

DRUGS (9)
  1. CARBOPLATIN. [Concomitant]
     Active Substance: CARBOPLATIN
     Indication: LARYNGEAL CANCER
     Route: 042
     Dates: end: 20120514
  2. DEXTROSE, SODIUM CHLORIDE, AND POTASSIUM CHLORIDE [Concomitant]
     Active Substance: DEXTROSE\POTASSIUM CHLORIDE\SODIUM CHLORIDE
     Indication: LARYNGEAL CANCER
     Route: 042
     Dates: end: 20120514
  3. LOPERAMIDE [Concomitant]
     Active Substance: LOPERAMIDE
     Indication: LARYNGEAL CANCER
     Route: 048
     Dates: end: 20120514
  4. ONDANSETRON [Concomitant]
     Active Substance: ONDANSETRON
     Route: 048
     Dates: end: 20120514
  5. CAPECITABINE [Suspect]
     Active Substance: CAPECITABINE
     Indication: LARYNGEAL CANCER
     Route: 048
     Dates: end: 20120514
  6. ONDANSETRON [Concomitant]
     Active Substance: ONDANSETRON
     Indication: LARYNGEAL CANCER
     Route: 048
     Dates: end: 20120514
  7. DOMPERIDONE [Concomitant]
     Active Substance: DOMPERIDONE
     Indication: LARYNGEAL CANCER
     Route: 048
     Dates: end: 20120514
  8. DEXAMETHASONE. [Concomitant]
     Active Substance: DEXAMETHASONE
     Indication: LARYNGEAL CANCER
     Route: 048
     Dates: end: 20120514
  9. DEXAMETHASONE. [Concomitant]
     Active Substance: DEXAMETHASONE
     Route: 048
     Dates: end: 20120514

REACTIONS (1)
  - Death [Fatal]
